FAERS Safety Report 5424444-4 (Version None)
Quarter: 2007Q3

REPORT INFORMATION
  Report Type: 
  Country: None (occurrence: None)
  Receive Date: 20070822
  Receipt Date: 20070807
  Transmission Date: 20080115
  Serious: Yes (Death)
  Sender: FDA-Public Use
  Company Number: ENT-2007-0126

PATIENT
  Age: 63 Year
  Sex: Female

DRUGS (3)
  1. COMTAN [Suspect]
     Indication: DRUG EFFECT DECREASED
     Dosage: 300 MG
     Route: 048
     Dates: start: 20070708, end: 20070710
  2. DOPACOL [Concomitant]
  3. FERROMIA [Concomitant]

REACTIONS (1)
  - CEREBRAL HAEMORRHAGE [None]
